FAERS Safety Report 4909964-0 (Version None)
Quarter: 2006Q1

REPORT INFORMATION
  Report Type: 
  Country: None (occurrence: None)
  Receive Date: 20060213
  Receipt Date: 20060201
  Transmission Date: 20060701
  Serious: Yes (Life-Threatening, Hospitalization)
  Sender: FDA-Public Use
  Company Number: BE-SANOFI-SYNTHELABO-A01200600779

PATIENT
  Sex: Male
  Weight: 79 kg

DRUGS (8)
  1. CLOPIDOGREL [Suspect]
     Indication: ACUTE CORONARY SYNDROME
     Route: 048
     Dates: start: 20050510
  2. ENOXAPARIN SODIUM [Suspect]
     Indication: DRUG USE FOR UNKNOWN INDICATION
     Dosage: 80 MG BOLUS DOSE UNK
     Route: 058
     Dates: start: 20050510, end: 20050510
  3. ENOXAPARIN SODIUM [Suspect]
     Dosage: 3 DOSES OF 80 MG UNK
     Route: 058
     Dates: start: 20050510, end: 20050510
  4. TIROFIBAN [Suspect]
     Indication: DRUG USE FOR UNKNOWN INDICATION
     Dosage: 0.9 MG BOLUS DOSE UNK
     Route: 042
     Dates: start: 20050509
  5. TIROFIBAN [Suspect]
     Dosage: 11.16 MG BOLUS UNK
     Route: 065
     Dates: start: 20050509, end: 20050510
  6. METFORMIN HYDROCHLORIDE [Concomitant]
     Indication: DIABETES MELLITUS
     Dosage: UNK
     Route: 065
  7. ACETAMINOPHEN [Concomitant]
     Indication: DRUG USE FOR UNKNOWN INDICATION
     Dosage: UNK
     Route: 065
  8. GLIQUIDONE [Concomitant]
     Indication: DRUG USE FOR UNKNOWN INDICATION
     Dosage: UNK
     Route: 065

REACTIONS (6)
  - ARTERIAL INJURY [None]
  - CARDIAC TAMPONADE [None]
  - HYPOTENSION [None]
  - IATROGENIC INJURY [None]
  - NAUSEA [None]
  - PROCEDURAL COMPLICATION [None]
